FAERS Safety Report 8165447-9 (Version None)
Quarter: 2012Q1

REPORT INFORMATION
  Report Type: 
  Country: None (occurrence: None)
  Receive Date: 20120227
  Receipt Date: 20120215
  Transmission Date: 20120608
  Serious: Yes (Other)
  Sender: FDA-Public Use
  Company Number: US-SANOFI-AVENTIS-2012SA009997

PATIENT
  Age: 48 Year
  Sex: Female
  Weight: 90 kg

DRUGS (22)
  1. DILANTIN [Suspect]
     Route: 048
  2. LACTULOSE [Suspect]
     Indication: CROHN'S DISEASE
     Route: 065
  3. SIMVASTATIN [Suspect]
     Route: 048
  4. TYLENOL W/ CODEINE NO. 3 [Suspect]
     Route: 065
  5. METHOCARBAMOL [Suspect]
     Route: 048
  6. NORVASC [Suspect]
     Indication: CARDIAC DISORDER
     Route: 048
  7. NORVASC [Suspect]
     Indication: LUNG DISORDER
     Route: 048
  8. ATIVAN [Suspect]
     Indication: NERVOUS SYSTEM DISORDER
     Route: 048
  9. LOMOTIL [Suspect]
     Indication: CROHN'S DISEASE
  10. POTASSIUM CHLORIDE [Suspect]
     Route: 065
  11. ZANTAC [Suspect]
     Route: 065
  12. ASPIRIN [Suspect]
     Indication: CHEST PAIN
     Route: 065
  13. HUMULIN R [Suspect]
     Dosage: DOSE:24 UNIT(S)
     Route: 065
  14. FUROSEMIDE [Suspect]
     Indication: DIURETIC THERAPY
     Route: 048
  15. METHOCARBAMOL [Suspect]
     Route: 048
  16. ALL OTHER THERAPEUTIC PRODUCTS [Suspect]
     Indication: DEPRESSION
     Route: 065
  17. LANTUS [Suspect]
     Dosage: 80 UNITS IN THE MORNING, 90 UNITS AT NIGHT
     Route: 058
  18. ISOSORBIDE MONONITRATE [Suspect]
     Indication: CARDIAC DISORDER
  19. ATENOLOL [Suspect]
     Route: 048
  20. NITROSTAT [Suspect]
     Indication: CHEST PAIN
     Route: 065
  21. DEPAKOTE [Suspect]
     Route: 048
  22. MIRTAZAPINE [Suspect]
     Indication: INSOMNIA
     Route: 048

REACTIONS (2)
  - CHRONIC OBSTRUCTIVE PULMONARY DISEASE [None]
  - EMPHYSEMA [None]
